FAERS Safety Report 9790685 (Version 1)
Quarter: 2013Q4

REPORT INFORMATION
  Report Type: Spontaneous
  Country: US (occurrence: US)
  Receive Date: 20131231
  Receipt Date: 20131231
  Transmission Date: 20140711
  Serious: Yes (Other)
  Sender: FDA-Public Use
  Company Number: US-PFIZER INC-2013373942

PATIENT
  Age: 62 Year
  Sex: Female
  Weight: 61.2 kg

DRUGS (4)
  1. CHANTIX [Suspect]
     Indication: SMOKING CESSATION THERAPY
     Dosage: UNK
  2. CHANTIX [Suspect]
     Dosage: 0.5 MG, DAILY
     Dates: start: 20130927, end: 2013
  3. CHANTIX [Suspect]
     Dosage: 1 MG, DAILY
     Dates: start: 2013, end: 2013
  4. CHANTIX [Suspect]
     Dosage: 1 MG, 2X/DAY
     Dates: start: 2013, end: 20131017

REACTIONS (1)
  - Breast cancer female [Recovered/Resolved]
